FAERS Safety Report 12593420 (Version 1)
Quarter: 2016Q3

REPORT INFORMATION
  Report Type: Report from Study
  Country: US (occurrence: US)
  Receive Date: 20160726
  Receipt Date: 20160726
  Transmission Date: 20161109
  Serious: No
  Sender: FDA-Public Use
  Company Number: US-AMGEN-USASL2016087731

PATIENT
  Age: 68 Year
  Sex: Male
  Weight: 102.95 kg

DRUGS (1)
  1. REPATHA [Suspect]
     Active Substance: EVOLOCUMAB
     Indication: BLOOD CHOLESTEROL INCREASED
     Dosage: 140 MG/ML, Q2WK
     Route: 058
     Dates: start: 201604, end: 20160701

REACTIONS (5)
  - Blood triglycerides increased [Unknown]
  - Blood cholesterol increased [Unknown]
  - Total cholesterol/HDL ratio increased [Unknown]
  - Non-high-density lipoprotein cholesterol increased [Unknown]
  - Low density lipoprotein increased [Unknown]
